FAERS Safety Report 7319893-3 (Version None)
Quarter: 2011Q1

REPORT INFORMATION
  Report Type: 
  Country: None (occurrence: None)
  Receive Date: 20110228
  Receipt Date: 20101117
  Transmission Date: 20110831
  Serious: No
  Sender: FDA-Public Use
  Company Number: A0892999A

PATIENT
  Age: 52 Year
  Sex: Female

DRUGS (13)
  1. KLONOPIN [Concomitant]
  2. MECLIZINE [Concomitant]
  3. SYNTHROID [Concomitant]
  4. VERAPAMIL [Concomitant]
  5. CELEBREX [Concomitant]
  6. LAMOTRIGINE [Suspect]
     Indication: PARTIAL SEIZURES
     Dosage: 75MG VARIABLE DOSE
     Route: 048
     Dates: start: 20101018, end: 20101116
  7. SKELAXIN [Concomitant]
  8. NEXIUM [Concomitant]
  9. LIPITOR [Concomitant]
  10. LISINOPRIL [Concomitant]
  11. LYRICA [Concomitant]
  12. NORTRIPTYLINE [Concomitant]
  13. TRAZODONE [Concomitant]

REACTIONS (3)
  - RASH [None]
  - MACULE [None]
  - URTICARIA [None]
